FAERS Safety Report 8989918 (Version 2)
Quarter: 2013Q1

REPORT INFORMATION
  Report Type: Spontaneous
  Country: TR (occurrence: TR)
  Receive Date: 20121228
  Receipt Date: 20130222
  Transmission Date: 20140127
  Serious: Yes (Other)
  Sender: FDA-Public Use
  Company Number: TR-B.I. PHARMACEUTICALS,INC./RIDGEFIELD-2012-AP-01157TK

PATIENT
  Age: 76 Year
  Sex: Male

DRUGS (4)
  1. PRADAXA [Suspect]
     Indication: ATRIAL FIBRILLATION
     Dosage: 220 MG
     Route: 048
     Dates: start: 201209, end: 201212
  2. PRADAXA [Suspect]
     Indication: HYPERTENSION
  3. DELIX PLUS [Concomitant]
     Dates: start: 2009
  4. DILATREND [Concomitant]

REACTIONS (1)
  - Hepatotoxicity [Recovered/Resolved]
